FAERS Safety Report 11889500 (Version 1)
Quarter: 2016Q1

REPORT INFORMATION
  Report Type: Spontaneous
  Country: US (occurrence: US)
  Receive Date: 20160105
  Receipt Date: 20160105
  Transmission Date: 20160526
  Serious: No
  Sender: FDA-Public Use
  Company Number: US-BAYER-2015-498244

PATIENT
  Age: 20 Year
  Sex: Female

DRUGS (1)
  1. MIRENA [Suspect]
     Active Substance: LEVONORGESTREL
     Indication: CONTRACEPTION
     Dosage: 20 MCG/24HR, CONT
     Route: 015
     Dates: start: 201510

REACTIONS (3)
  - Libido decreased [Not Recovered/Not Resolved]
  - Dyspareunia [Not Recovered/Not Resolved]
  - Inadequate lubrication [Not Recovered/Not Resolved]

NARRATIVE: CASE EVENT DATE: 201511
